FAERS Safety Report 8330016-4 (Version None)
Quarter: 2012Q2

REPORT INFORMATION
  Report Type: 
  Country: None (occurrence: None)
  Receive Date: 20120502
  Receipt Date: 20091223
  Transmission Date: 20120825
  Serious: No
  Sender: FDA-Public Use
  Company Number: US-TEVA-2009029868

PATIENT
  Sex: Female
  Weight: 108.96 kg

DRUGS (5)
  1. PRILOSEC OTC [Concomitant]
     Indication: ABDOMINAL DISCOMFORT
     Route: 048
     Dates: start: 20070101
  2. ZYRTEC [Concomitant]
     Indication: HYPERSENSITIVITY
     Route: 048
     Dates: start: 20070101
  3. NUVIGIL [Suspect]
     Indication: SLEEP APNOEA SYNDROME
     Dosage: 250 MILLIGRAM;
     Route: 048
     Dates: start: 20091001, end: 20091218
  4. LYRICA [Concomitant]
     Indication: BACK PAIN
     Dosage: 150 MILLIGRAM;
     Route: 048
     Dates: start: 20090401
  5. HYDROCODONE BITARTRATE AND ACETAMINOPHEN [Concomitant]
     Indication: BACK PAIN

REACTIONS (1)
  - URTICARIA [None]
